FAERS Safety Report 5476668-8 (Version None)
Quarter: 2007Q4

REPORT INFORMATION
  Report Type: 
  Country: None (occurrence: None)
  Receive Date: 20071004
  Receipt Date: 20070925
  Transmission Date: 20080405
  Serious: Yes (Hospitalization)
  Sender: FDA-Public Use
  Company Number: FR-AVENTIS-200713050FR

PATIENT
  Age: 58 Year
  Sex: Male

DRUGS (5)
  1. RAMIPRIL [Suspect]
     Route: 048
  2. LASIX [Suspect]
     Indication: CARDIAC FAILURE
     Route: 048
  3. PREVISCAN                          /00789001/ [Suspect]
     Indication: THROMBOSIS
     Route: 048
     Dates: end: 20061013
  4. ALDACTONE [Suspect]
     Indication: CARDIAC FAILURE
     Route: 048
  5. ELISOR [Suspect]
     Route: 048

REACTIONS (1)
  - RECTAL HAEMORRHAGE [None]
